FAERS Safety Report 9145271 (Version 1)
Quarter: 2013Q1

REPORT INFORMATION
  Report Type: Spontaneous
  Country: US (occurrence: None)
  Receive Date: 20130226
  Receipt Date: 20130226
  Transmission Date: 20140127
  Serious: Yes (Other)
  Sender: FDA-Public Use
  Company Number: None

PATIENT
  Age: 84 Year
  Sex: Female

DRUGS (1)
  1. PANTOPRAZOLE [Suspect]
     Dosage: 1  BID  PO
     Route: 048
     Dates: start: 20120831, end: 20121121

REACTIONS (3)
  - Colitis [None]
  - Haemorrhage [None]
  - Product substitution issue [None]
